FAERS Safety Report 8981930 (Version 1)
Quarter: 2012Q4

REPORT INFORMATION
  Report Type: 
  Country: JP (occurrence: JP)
  Receive Date: 20121223
  Receipt Date: 20121223
  Transmission Date: 20130627
  Serious: Yes (Other)
  Sender: FDA-Public Use
  Company Number: JP-009507513-1212JPN008581

PATIENT
  Age: 47 Year
  Sex: Male
  Weight: 78 kg

DRUGS (11)
  1. PEGINTRON [Suspect]
     Indication: CHRONIC HEPATITIS C
     Dosage: 1.5 Microgram per kilogram, qw
     Route: 058
     Dates: start: 20120915, end: 20120915
  2. PEGINTRON [Suspect]
     Dosage: 0.75 Microgram per kilogram per week
     Route: 058
     Dates: start: 20120922, end: 20120922
  3. PEGINTRON [Suspect]
     Dosage: 1.0 Microgram per kilogram per week
     Route: 058
     Dates: start: 20120928, end: 20121122
  4. PEGINTRON [Suspect]
     Dosage: 0.75 Microgram per kilogram per week
     Route: 058
     Dates: start: 20121129, end: 20121129
  5. REBETOL [Suspect]
     Indication: CHRONIC HEPATITIS C
     Dosage: 800 mg, qd
     Route: 048
     Dates: start: 20120915, end: 20121010
  6. REBETOL [Suspect]
     Dosage: 600 mg,qd
     Route: 048
     Dates: start: 20121011
  7. TELAVIC [Suspect]
     Indication: CHRONIC HEPATITIS C
     Dosage: 2250 mg, qd
     Route: 048
     Dates: start: 20120915, end: 20121003
  8. TELAVIC [Suspect]
     Dosage: 1500 mg, qd
     Route: 048
     Dates: start: 20121004, end: 20121206
  9. FEBURIC [Concomitant]
     Dosage: 20 mg, qd, formulation: POR
     Route: 048
     Dates: start: 20120927
  10. XYZAL [Concomitant]
     Dosage: 5 mg, qd, formulation: POR
     Route: 048
  11. PRIMPERAN [Concomitant]
     Dosage: As needed, formulation POR
     Route: 048
     Dates: start: 20120927

REACTIONS (1)
  - Decreased appetite [Recovered/Resolved]
